FAERS Safety Report 8457293-3 (Version None)
Quarter: 2012Q2

REPORT INFORMATION
  Report Type: 
  Country: None (occurrence: None)
  Receive Date: 20120621
  Receipt Date: 20120618
  Transmission Date: 20120825
  Serious: No
  Sender: FDA-Public Use
  Company Number: US-B.I. PHARMACEUTICALS,INC./RIDGEFIELD-2012-BP-13965BP

PATIENT
  Sex: Male

DRUGS (5)
  1. BETA BLOCKER [Concomitant]
     Indication: HEART RATE DECREASED
     Dosage: 150 MG
     Route: 048
  2. BETA BLOCKER [Concomitant]
     Indication: HYPOTENSION
  3. PRADAXA [Suspect]
     Indication: TRANSIENT ISCHAEMIC ATTACK
  4. MELATONIN [Concomitant]
     Indication: SLEEP DISORDER
     Dosage: 3 MG
     Route: 048
  5. PRADAXA [Suspect]
     Indication: ATRIAL FIBRILLATION
     Dosage: 300 MG
     Route: 048
     Dates: start: 20120330

REACTIONS (1)
  - GASTRIC DISORDER [None]
